FAERS Safety Report 8167610-X (Version None)
Quarter: 2012Q1

REPORT INFORMATION
  Report Type: 
  Country: None (occurrence: None)
  Receive Date: 20120227
  Receipt Date: 20120222
  Transmission Date: 20120608
  Serious: Yes (Other)
  Sender: FDA-Public Use
  Company Number: FR-PFIZER INC-2012046200

PATIENT
  Age: 33 Year
  Sex: Female

DRUGS (1)
  1. ZITHROMAX [Suspect]
     Indication: BRONCHITIS
     Dosage: 2 DF, 1X/DAY
     Route: 048
     Dates: start: 20111130, end: 20111202

REACTIONS (2)
  - ONYCHOLYSIS [None]
  - RASH [None]
